FAERS Safety Report 4628669-7 (Version None)
Quarter: 2005Q2

REPORT INFORMATION
  Report Type: 
  Country: None (occurrence: None)
  Receive Date: 20050406
  Receipt Date: 20050314
  Transmission Date: 20051028
  Serious: Yes (Disabling)
  Sender: FDA-Public Use
  Company Number: US-MERCK-0503USA02305

PATIENT
  Age: 45 Year
  Sex: Female
  Weight: 75 kg

DRUGS (8)
  1. SINGULAIR [Suspect]
     Indication: ASTHMA
     Route: 048
     Dates: start: 20050104, end: 20050206
  2. SINGULAIR [Suspect]
     Indication: COUGH
     Route: 048
     Dates: start: 20050104, end: 20050206
  3. ALLEGRA [Concomitant]
     Route: 065
  4. PULMICORT [Concomitant]
     Indication: COUGH
     Route: 065
     Dates: start: 20050104, end: 20050206
  5. PULMICORT [Concomitant]
     Indication: BRONCHOSPASM
     Route: 065
     Dates: start: 20050104, end: 20050206
  6. NASACORT [Concomitant]
     Route: 048
     Dates: start: 20041206, end: 20050104
  7. OMNICEF [Concomitant]
     Route: 065
  8. ADVAIR DISKUS 100/50 [Concomitant]
     Route: 048
     Dates: start: 20041206, end: 20050104

REACTIONS (5)
  - BACK PAIN [None]
  - HYPERSENSITIVITY [None]
  - HYPOAESTHESIA [None]
  - MUSCLE SPASMS [None]
  - PARAESTHESIA [None]
